FAERS Safety Report 13400218 (Version 1)
Quarter: 2017Q2

REPORT INFORMATION
  Report Type: Spontaneous
  Country: US (occurrence: US)
  Receive Date: 20170404
  Receipt Date: 20170404
  Transmission Date: 20170830
  Serious: No
  Sender: FDA-Public Use
  Company Number: US-PFIZER INC-2017142857

PATIENT
  Age: 64 Year
  Sex: Male

DRUGS (1)
  1. SUTENT [Suspect]
     Active Substance: SUNITINIB MALATE
     Indication: RENAL CANCER
     Dosage: 50 MG, CYCLIC (1 CAPSULE, DAILY FOR 14 DAYS THEN 7 DAYS OFF)
     Route: 048
     Dates: start: 20170309

REACTIONS (3)
  - Gingival pain [Unknown]
  - Dysgeusia [Unknown]
  - Erythema [Unknown]

NARRATIVE: CASE EVENT DATE: 20170330
